FAERS Safety Report 4980374-3 (Version None)
Quarter: 2006Q2

REPORT INFORMATION
  Report Type: 
  Country: None (occurrence: None)
  Receive Date: 20060421
  Receipt Date: 20060421
  Transmission Date: 20061013
  Serious: Yes (Other)
  Sender: FDA-Public Use
  Company Number: None

PATIENT
  Age: 58 Year
  Sex: Female
  Weight: 72.5755 kg

DRUGS (2)
  1. LEVAQUIN [Suspect]
     Indication: BRONCHITIS
     Dosage: 1 TABLET  DAILY PO
     Route: 048
     Dates: start: 20060202, end: 20060210
  2. LEVAQUIN [Suspect]
     Indication: SINUSITIS
     Dosage: 1 TABLET  DAILY PO
     Route: 048
     Dates: start: 20060202, end: 20060210

REACTIONS (14)
  - ASTHENIA [None]
  - CHILLS [None]
  - DISTURBANCE IN ATTENTION [None]
  - DYSPNOEA [None]
  - FATIGUE [None]
  - FEELING ABNORMAL [None]
  - FEELING JITTERY [None]
  - INSOMNIA [None]
  - MEMORY IMPAIRMENT [None]
  - MYALGIA [None]
  - PAIN IN EXTREMITY [None]
  - PALPITATIONS [None]
  - SHOULDER PAIN [None]
  - VISION BLURRED [None]
